FAERS Safety Report 6713777-7 (Version None)
Quarter: 2010Q2

REPORT INFORMATION
  Report Type: 
  Country: None (occurrence: None)
  Receive Date: 20100506
  Receipt Date: 20100426
  Transmission Date: 20101027
  Serious: Yes (Hospitalization, Other)
  Sender: FDA-Public Use
  Company Number: -BAXTER-2010BH006409

PATIENT

DRUGS (1)
  1. DEXTROSE 5% AND SODIUM CHLORIDE 0.45% IN PLASTIC CONTAINER [Suspect]
     Indication: HYPERNATRAEMIA
     Route: 042
     Dates: start: 20100303, end: 20100303

REACTIONS (1)
  - CHILLS [None]
